FAERS Safety Report 8533854-8 (Version None)
Quarter: 2012Q3

REPORT INFORMATION
  Report Type: 
  Country: None (occurrence: None)
  Receive Date: 20120724
  Receipt Date: 20120709
  Transmission Date: 20120928
  Serious: Yes (Hospitalization, Other)
  Sender: FDA-Public Use
  Company Number: US-WATSON-2012-11990

PATIENT
  Sex: Male
  Weight: 82 kg

DRUGS (2)
  1. RAPAFLO [Suspect]
     Indication: URINARY RETENTION
     Dosage: 8 MG, DAILY
     Route: 048
     Dates: start: 20110901
  2. RAPAFLO [Suspect]
     Indication: BENIGN PROSTATIC HYPERPLASIA

REACTIONS (2)
  - SYNCOPE [None]
  - DIZZINESS [None]
